FAERS Safety Report 7143747 (Version 4)
Quarter: 2013Q4

REPORT INFORMATION
  Report Type: Spontaneous
  Country: AU (occurrence: AU)
  Receive Date: 20091008
  Receipt Date: 20131127
  Transmission Date: 20140711
  Serious: Yes (Disabling)
  Sender: FDA-Public Use
  Company Number: AU-PFIZER INC-2009261434

PATIENT
  Age: 64 Year
  Sex: Female
  Weight: 60 kg

DRUGS (8)
  1. LYRICA [Suspect]
     Indication: NEURALGIA
     Dosage: 75 MG, 1X/DAY
     Route: 048
     Dates: start: 20090805, end: 20090814
  2. BRUFEN [Concomitant]
     Indication: PAIN
     Dosage: 400 MG, 4X/DAY
     Route: 048
  3. BUPRENORPHINE [Concomitant]
     Indication: PAIN
     Dosage: 5 MG, UNK
     Route: 062
  4. BUPRENORPHINE [Concomitant]
     Dosage: 10 MG, UNK
  5. ENDONE [Concomitant]
  6. OXYNORM [Concomitant]
  7. ENDEP [Concomitant]
     Indication: NEURALGIA
     Dosage: 25 MG, 1X/DAY AT NIGHT
     Route: 048
  8. OROXINE [Concomitant]
     Indication: HYPOTHYROIDISM
     Dosage: 100 UG, 1X/DAY
     Route: 048

REACTIONS (12)
  - Hypoaesthesia [Not Recovered/Not Resolved]
  - Pain in extremity [Unknown]
  - Muscle spasms [Unknown]
  - Hyperhidrosis [Unknown]
  - Paraesthesia [Not Recovered/Not Resolved]
  - Tinnitus [Unknown]
  - Muscular weakness [Unknown]
  - Joint swelling [Unknown]
  - Blood pressure increased [Unknown]
  - Pruritus generalised [Unknown]
  - Local swelling [Unknown]
  - Anger [Unknown]
